FAERS Safety Report 18208931 (Version 3)
Quarter: 2020Q3

REPORT INFORMATION
  Report Type: Spontaneous
  Country: MX (occurrence: MX)
  Receive Date: 20200828
  Receipt Date: 20200907
  Transmission Date: 20201103
  Serious: Yes (Hospitalization)
  Sender: FDA-Public Use
  Company Number: MX-BAUSCH-BL-2020-024734

PATIENT
  Age: 80 Year
  Sex: Female

DRUGS (1)
  1. FLONORM [RIFAXIMIN] [Suspect]
     Active Substance: RIFAXIMIN
     Indication: HEPATIC CIRRHOSIS
     Dosage: 2 TABLETS A DAY
     Route: 048
     Dates: start: 20180418

REACTIONS (3)
  - Blood glucose abnormal [Recovered/Resolved]
  - Vomiting [Recovered/Resolved]
  - Constipation [Recovered/Resolved]

NARRATIVE: CASE EVENT DATE: 20200816
